FAERS Safety Report 9934903 (Version 1)
Quarter: 2014Q1

REPORT INFORMATION
  Report Type: Spontaneous
  Country: US (occurrence: US)
  Receive Date: 20140228
  Receipt Date: 20140228
  Transmission Date: 20141002
  Serious: Yes (Hospitalization)
  Sender: FDA-Public Use
  Company Number: US-SA-2014SA024616

PATIENT
  Age: 19 Year
  Sex: Female

DRUGS (1)
  1. LANTUS [Suspect]
     Route: 058
     Dates: start: 201305

REACTIONS (3)
  - Urinary tract infection [Not Recovered/Not Resolved]
  - Cystitis [Unknown]
  - Blood glucose increased [Unknown]
